FAERS Safety Report 17022977 (Version 1)
Quarter: 2019Q4

REPORT INFORMATION
  Report Type: Other
  Country: GB (occurrence: GB)
  Receive Date: 20191112
  Receipt Date: 20191112
  Transmission Date: 20200122
  Serious: Yes (Life-Threatening)
  Sender: FDA-Public Use
  Company Number: GB-LEADIANT BIOSCIENCES INC-2019STPI000539

PATIENT
  Age: 45 Year
  Sex: Female
  Weight: 65 kg

DRUGS (7)
  1. DEXAMETHASONE. [Concomitant]
     Active Substance: DEXAMETHASONE
  2. VINCRISTINE SULFATE. [Concomitant]
     Active Substance: VINCRISTINE SULFATE
     Indication: GLIOBLASTOMA MULTIFORME
     Dosage: 2 MILLIGRAM, QD
     Route: 042
     Dates: start: 20180522, end: 20180522
  3. MATULANE [Suspect]
     Active Substance: PROCARBAZINE HYDROCHLORIDE
     Indication: GLIOBLASTOMA MULTIFORME
     Dosage: 150 MILLIGRAM
     Route: 048
     Dates: start: 20180522, end: 20180602
  4. KEPPRA [Concomitant]
     Active Substance: LEVETIRACETAM
  5. LOMUSTINE. [Concomitant]
     Active Substance: LOMUSTINE
     Indication: GLIOBLASTOMA MULTIFORME
     Dosage: 160 MILLIGRAM
     Route: 048
     Dates: start: 20180522, end: 20180522
  6. NATULAN [Suspect]
     Active Substance: PROCARBAZINE HYDROCHLORIDE
     Indication: GLIOBLASTOMA MULTIFORME
     Dosage: 150 MILLIGRAM
     Route: 048
     Dates: start: 20180522, end: 20180602
  7. ONDANSETRON HYDROCHLORIDE. [Concomitant]
     Active Substance: ONDANSETRON HYDROCHLORIDE
     Indication: NAUSEA
     Dosage: 16 MILLIGRAM, QD
     Route: 048
     Dates: start: 20180522, end: 20180527

REACTIONS (1)
  - Acute hepatic failure [Not Recovered/Not Resolved]

NARRATIVE: CASE EVENT DATE: 20180608
